FAERS Safety Report 12230450 (Version 1)
Quarter: 2016Q2

REPORT INFORMATION
  Report Type: Spontaneous
  Country: US (occurrence: US)
  Receive Date: 20160401
  Receipt Date: 20160401
  Transmission Date: 20160815
  Serious: No
  Sender: FDA-Public Use
  Company Number: US-WATSON-2015-17962

PATIENT
  Age: 54 Year
  Sex: Female
  Weight: 77 kg

DRUGS (1)
  1. ESTRADIOL (WATSON LABORATORIES) [Suspect]
     Active Substance: ESTRADIOL
     Indication: HORMONE REPLACEMENT THERAPY
     Dosage: 1 MG, DAILY
     Route: 048

REACTIONS (1)
  - Drug ineffective [Unknown]
